FAERS Safety Report 6296626-3 (Version None)
Quarter: 2009Q3

REPORT INFORMATION
  Report Type: 
  Country: None (occurrence: None)
  Receive Date: 20090804
  Receipt Date: 20090730
  Transmission Date: 20100115
  Serious: Yes (Other)
  Sender: FDA-Public Use
  Company Number: JP-BRISTOL-MYERS SQUIBB COMPANY-14724132

PATIENT
  Age: 23 Year
  Sex: Male

DRUGS (1)
  1. MAXIPIME [Suspect]
     Route: 042
     Dates: start: 20081101, end: 20081201

REACTIONS (2)
  - LIVER DISORDER [None]
  - STEVENS-JOHNSON SYNDROME [None]
